FAERS Safety Report 5798176-7 (Version None)
Quarter: 2008Q3

REPORT INFORMATION
  Report Type: 
  Country: None (occurrence: None)
  Receive Date: 20080702
  Receipt Date: 20080624
  Transmission Date: 20090109
  Serious: Yes (Other)
  Sender: FDA-Public Use
  Company Number: A0734534A

PATIENT
  Age: 46 Year
  Sex: Female

DRUGS (3)
  1. LAMICTAL [Suspect]
     Indication: BIPOLAR DISORDER
     Dosage: 100MG TWICE PER DAY
     Route: 048
     Dates: start: 20080523, end: 20080620
  2. EXCEDRIN (MIGRAINE) [Concomitant]
  3. ALKA SELTZER COLD MEDICINE [Concomitant]

REACTIONS (6)
  - AMNESIA [None]
  - CARDIAC FLUTTER [None]
  - HEADACHE [None]
  - INSOMNIA [None]
  - MALAISE [None]
  - SUICIDAL IDEATION [None]
